FAERS Safety Report 10677120 (Version 1)
Quarter: 2014Q4

REPORT INFORMATION
  Report Type: Spontaneous
  Country: BR (occurrence: BR)
  Receive Date: 20141226
  Receipt Date: 20141226
  Transmission Date: 20150529
  Serious: Yes (Hospitalization, Other)
  Sender: FDA-Public Use
  Company Number: BR-009507513-1412BRA011121

PATIENT
  Age: 1 Year
  Sex: Female
  Weight: 12 kg

DRUGS (1)
  1. SINGULAIR [Suspect]
     Active Substance: MONTELUKAST SODIUM
     Indication: ASTHMA
     Dosage: 4 MG, QD
     Route: 048
     Dates: start: 20141208, end: 20141212

REACTIONS (2)
  - Seizure [Recovered/Resolved]
  - Gaze palsy [Recovering/Resolving]

NARRATIVE: CASE EVENT DATE: 20141209
